FAERS Safety Report 15477793 (Version 1)
Quarter: 2018Q4

REPORT INFORMATION
  Report Type: Spontaneous
  Country: US (occurrence: US)
  Receive Date: 20181002
  Receipt Date: 20181002
  Transmission Date: 20190205
  Serious: No
  Sender: FDA-Public Use
  Company Number: None

PATIENT
  Age: 40 Year
  Sex: Female
  Weight: 57.6 kg

DRUGS (6)
  1. JOLESSA [Concomitant]
     Active Substance: ETHINYL ESTRADIOL\LEVONORGESTREL
  2. MAGNESIUM [Concomitant]
     Active Substance: MAGNESIUM
  3. NAPROXEN. [Concomitant]
     Active Substance: NAPROXEN
  4. RHOFADE [Suspect]
     Active Substance: OXYMETAZOLINE HYDROCHLORIDE
     Indication: ROSACEA
     Route: 061
  5. SUMATRIPTAN. [Concomitant]
     Active Substance: SUMATRIPTAN
  6. TIZANIDINE. [Concomitant]
     Active Substance: TIZANIDINE

REACTIONS (5)
  - Application site warmth [None]
  - Application site erythema [None]
  - Application site pain [None]
  - Acne [None]
  - Erythema [None]

NARRATIVE: CASE EVENT DATE: 20180910
